FAERS Safety Report 6536139-4 (Version None)
Quarter: 2010Q1

REPORT INFORMATION
  Report Type: 
  Country: None (occurrence: None)
  Receive Date: 20100113
  Receipt Date: 20091015
  Transmission Date: 20100710
  Serious: No
  Sender: FDA-Public Use
  Company Number: US-ALLERGAN-0914366US

PATIENT
  Age: 56 Year
  Sex: Female

DRUGS (2)
  1. LATISSE [Suspect]
     Indication: HYPOTRICHOSIS
     Dosage: UNK
     Route: 061
     Dates: start: 20090924
  2. LATISSE [Suspect]
     Dosage: UNK
     Route: 061

REACTIONS (3)
  - ASTHENOPIA [None]
  - DRUG HYPERSENSITIVITY [None]
  - EYE SWELLING [None]
